FAERS Safety Report 4318700-0 (Version None)
Quarter: 2004Q1

REPORT INFORMATION
  Report Type: 
  Country: None (occurrence: None)
  Receive Date: 20040315
  Receipt Date: 20040302
  Transmission Date: 20041129
  Serious: Yes (Hospitalization)
  Sender: FDA-Public Use
  Company Number: 2004SE01166

PATIENT
  Age: 78 Year
  Sex: Female

DRUGS (4)
  1. BLOPRESS [Suspect]
     Indication: HYPERTENSION
     Dosage: 8 MG PO
     Route: 048
     Dates: start: 20020601, end: 20031201
  2. NIFEDIPINE [Concomitant]
  3. DIMETICONE [Concomitant]
  4. MEFRUSIDE [Concomitant]

REACTIONS (8)
  - ANOREXIA [None]
  - ARTHRALGIA [None]
  - CHILLS [None]
  - DEHYDRATION [None]
  - GAIT DISTURBANCE [None]
  - MALAISE [None]
  - NASOPHARYNGITIS [None]
  - RHABDOMYOLYSIS [None]
